FAERS Safety Report 9871319 (Version 2)
Quarter: 2014Q1

REPORT INFORMATION
  Report Type: Spontaneous
  Country: US (occurrence: US)
  Receive Date: 20140205
  Receipt Date: 20140212
  Transmission Date: 20141002
  Serious: Yes (Hospitalization)
  Sender: FDA-Public Use
  Company Number: US-BAYER-2014-017721

PATIENT
  Age: 24 Year
  Sex: Female
  Weight: 56.24 kg

DRUGS (4)
  1. MIRENA [Suspect]
     Dosage: 20 MCG/24HR, CONT
     Route: 015
     Dates: start: 20120119, end: 20120207
  2. PRENATAL [FOLIC ACID,IRON] [Concomitant]
  3. FERROUS SULFATE [Concomitant]
     Dosage: 325 MG, QD
  4. MOTRIN [Concomitant]
     Dosage: 800 MG, PRN

REACTIONS (8)
  - Uterine perforation [None]
  - Abdominal pain lower [None]
  - Medical device discomfort [None]
  - Device issue [None]
  - Injury [None]
  - Pain [None]
  - Emotional distress [None]
  - Device issue [None]
